FAERS Safety Report 9407420 (Version 2)
Quarter: 2013Q4

REPORT INFORMATION
  Report Type: Spontaneous
  Country: DE (occurrence: DE)
  Receive Date: 20130718
  Receipt Date: 20131008
  Transmission Date: 20140711
  Serious: Yes (Hospitalization, Disabling, Congenital Anomaly)
  Sender: FDA-Public Use
  Company Number: DE-MYLANLABS-2013S1014815

PATIENT
  Sex: Male
  Weight: 1.28 kg

DRUGS (5)
  1. CITALOPRAM [Suspect]
     Dosage: DAILY DOSE: 1 DF DOSAGE FORM EVERY DAYS
     Route: 064
  2. KATADOLON [Suspect]
     Dosage: 1-2X/D
     Route: 064
  3. TILIDIN [Concomitant]
     Route: 064
  4. PANTOPRAZOL [Concomitant]
     Route: 064
  5. DIAZEPAM [Concomitant]
     Route: 064

REACTIONS (5)
  - Congenital hydrocephalus [Not Recovered/Not Resolved]
  - Limb reduction defect [Not Recovered/Not Resolved]
  - Pulmonary hypertension [Not Recovered/Not Resolved]
  - Foetal exposure timing unspecified [Not Recovered/Not Resolved]
  - Exposure during pregnancy [Unknown]
